FAERS Safety Report 8113212 (Version 3)
Quarter: 2014Q2

REPORT INFORMATION
  Report Type: Report from Study
  Country: JP (occurrence: JP)
  Receive Date: 20110830
  Receipt Date: 20140604
  Transmission Date: 20141212
  Serious: Yes (Life-Threatening, Hospitalization)
  Sender: FDA-Public Use
  Company Number: JP-PFIZER INC-2010162079

PATIENT
  Age: 52 Year
  Sex: Male
  Weight: 64 kg

DRUGS (2)
  1. SILDENAFIL CITRATE [Suspect]
     Indication: PULMONARY ARTERIAL HYPERTENSION
     Dosage: UNK
     Route: 048
     Dates: start: 20081119, end: 20090520
  2. SILDENAFIL CITRATE [Suspect]
     Dosage: 60 MG, 3X/DAY
     Route: 048
     Dates: start: 20090521, end: 20100325

REACTIONS (1)
  - Colon cancer [Recovering/Resolving]
